APPROVED DRUG PRODUCT: PHENTERMINE HYDROCHLORIDE
Active Ingredient: PHENTERMINE HYDROCHLORIDE
Strength: 37.5MG
Dosage Form/Route: TABLET;ORAL
Application: A091451 | Product #001
Applicant: NOVAST LABORATORIES LTD
Approved: Sep 21, 2012 | RLD: No | RS: No | Type: DISCN